FAERS Safety Report 5494811-1 (Version None)
Quarter: 2007Q4

REPORT INFORMATION
  Report Type: 
  Country: None (occurrence: None)
  Receive Date: 20071024
  Receipt Date: 20071018
  Transmission Date: 20080405
  Serious: Yes (Other)
  Sender: FDA-Public Use
  Company Number: GB-AVENTIS-200719643GDDC

PATIENT
  Sex: Female

DRUGS (6)
  1. RIFATER [Suspect]
     Indication: TUBERCULOSIS
     Dosage: DOSE QUANTITY: 6
     Route: 048
  2. PYRIDOXIN [Concomitant]
     Indication: TUBERCULOSIS
     Dosage: DOSE: UNK
  3. ETHAMBUTOL HCL [Concomitant]
     Indication: TUBERCULOSIS
     Dosage: DOSE: UNK
  4. ACYCLOVIR [Concomitant]
     Dosage: DOSE: UNK
  5. CEFUROXIME [Concomitant]
     Dosage: DOSE: UNK
  6. CORTICOSTEROIDS [Concomitant]
     Dosage: DOSE: UNK

REACTIONS (2)
  - DISEASE PROGRESSION [None]
  - MENINGITIS TUBERCULOUS [None]
